FAERS Safety Report 22274437 (Version 3)
Quarter: 2024Q1

REPORT INFORMATION
  Report Type: Spontaneous
  Country: CA (occurrence: CA)
  Receive Date: 20230502
  Receipt Date: 20240122
  Transmission Date: 20240410
  Serious: Yes (Other)
  Sender: FDA-Public Use
  Company Number: None

PATIENT
  Age: 71 Year
  Sex: Male

DRUGS (3)
  1. LIPIODOL [Suspect]
     Active Substance: ETHIODIZED OIL
     Indication: Transcatheter arterial chemoembolisation
     Route: 013
     Dates: start: 20200630, end: 20200630
  2. DOXORUBICIN [Suspect]
     Active Substance: DOXORUBICIN
     Indication: Transcatheter arterial chemoembolisation
     Route: 013
     Dates: start: 20200630, end: 20200630
  3. GELFOAM [Suspect]
     Active Substance: GELATIN\THROMBIN HUMAN
     Indication: Transcatheter arterial chemoembolisation
     Route: 013
     Dates: start: 20200630, end: 20200630

REACTIONS (5)
  - Skin injury [Not Recovered/Not Resolved]
  - Embolism [Not Recovered/Not Resolved]
  - Dysaesthesia [Not Recovered/Not Resolved]
  - Product use in unapproved indication [Not Recovered/Not Resolved]
  - Device use issue [Not Recovered/Not Resolved]

NARRATIVE: CASE EVENT DATE: 20200701
